FAERS Safety Report 18737697 (Version 2)
Quarter: 2021Q1

REPORT INFORMATION
  Report Type: Report from Study
  Country: None (occurrence: FR)
  Receive Date: 20210113
  Receipt Date: 20210216
  Transmission Date: 20210419
  Serious: Yes (Other)
  Sender: FDA-Public Use
  Company Number: FR-ABBVIE-21K-056-3725995-00

PATIENT
  Age: 56 Year
  Sex: Female
  Weight: 42 kg

DRUGS (4)
  1. HUMIRA [Suspect]
     Active Substance: ADALIMUMAB
     Route: 058
     Dates: start: 20201223, end: 20201223
  2. HUMIRA [Suspect]
     Active Substance: ADALIMUMAB
     Route: 058
     Dates: start: 20210106, end: 2021
  3. HUMIRA [Suspect]
     Active Substance: ADALIMUMAB
     Route: 058
     Dates: start: 20210203
  4. HUMIRA [Suspect]
     Active Substance: ADALIMUMAB
     Indication: CROHN^S DISEASE
     Route: 058
     Dates: start: 20201209, end: 20201209

REACTIONS (15)
  - Dysphagia [Unknown]
  - Swelling face [Unknown]
  - Aggression [Unknown]
  - Crohn^s disease [Unknown]
  - Tachycardia [Unknown]
  - Drug ineffective [Unknown]
  - Hypertension [Unknown]
  - Asthenia [Unknown]
  - C-reactive protein increased [Unknown]
  - Obstruction [Unknown]
  - Chills [Unknown]
  - Inflammation [Unknown]
  - Off label use [Unknown]
  - Dry mouth [Unknown]
  - Abdominal pain [Unknown]

NARRATIVE: CASE EVENT DATE: 20201209
